FAERS Safety Report 19164173 (Version 3)
Quarter: 2021Q4

REPORT INFORMATION
  Report Type: Spontaneous
  Country: US (occurrence: US)
  Receive Date: 20210421
  Receipt Date: 20211115
  Transmission Date: 20220304
  Serious: Yes (Life-Threatening, Disabling)
  Sender: FDA-Public Use
  Company Number: US-AMERICAN REGENT INC-2021000970

PATIENT
  Sex: Female
  Weight: 141.04 kg

DRUGS (28)
  1. FERRIC CARBOXYMALTOSE [Suspect]
     Active Substance: FERRIC CARBOXYMALTOSE
     Indication: Iron deficiency anaemia
     Dosage: 750 MILLIGRAM DAILY OVER 15 MINUTES FOR 1 DAY IN NS 250 ML
     Route: 042
     Dates: start: 20150313, end: 20150313
  2. FERRIC CARBOXYMALTOSE [Suspect]
     Active Substance: FERRIC CARBOXYMALTOSE
     Indication: Malabsorption
     Dosage: 750 MILLIGRAM DAILY OVER 15 MINUTES FOR 1 DAY IN NS 250 ML
     Route: 042
     Dates: start: 20160902, end: 20160902
  3. FERRIC CARBOXYMALTOSE [Suspect]
     Active Substance: FERRIC CARBOXYMALTOSE
     Dosage: 750 MILLIGRAM DAILY OVER 15 MINUTES FOR 1 DAY IN NS 250 ML
     Route: 042
     Dates: start: 20160909, end: 20160909
  4. FERRIC CARBOXYMALTOSE [Suspect]
     Active Substance: FERRIC CARBOXYMALTOSE
     Dosage: 750 MILLIGRAM, SINGLE
     Route: 042
     Dates: start: 20170929, end: 20170929
  5. FERRIC CARBOXYMALTOSE [Suspect]
     Active Substance: FERRIC CARBOXYMALTOSE
     Dosage: 750 MILLIGRAM, SINGLE
     Route: 042
     Dates: start: 20171006, end: 20171006
  6. FERRIC CARBOXYMALTOSE [Suspect]
     Active Substance: FERRIC CARBOXYMALTOSE
     Dosage: 750 MILLIGRAM, SINGLE
     Route: 042
     Dates: start: 20180511, end: 20180511
  7. FERRIC CARBOXYMALTOSE [Suspect]
     Active Substance: FERRIC CARBOXYMALTOSE
     Dosage: 750 MILLIGRAM, SINGLE
     Route: 042
     Dates: start: 20180518, end: 20180518
  8. DEXAMETHASONE SODIUM PHOSPHATE [Concomitant]
     Active Substance: DEXAMETHASONE SODIUM PHOSPHATE
     Indication: Premedication
     Dosage: 10 MILLIGRAM DAILY OVER 20 MINUTES FOR 1 DAY IN NS 50 ML
     Route: 042
     Dates: start: 20150313, end: 20150313
  9. DEXAMETHASONE SODIUM PHOSPHATE [Concomitant]
     Active Substance: DEXAMETHASONE SODIUM PHOSPHATE
     Dosage: 10 MILLIGRAM DAILY OVER 20 MINUTES FOR 1 DAY IN NS 50 ML
     Route: 042
     Dates: start: 20160902, end: 20160902
  10. DEXAMETHASONE SODIUM PHOSPHATE [Concomitant]
     Active Substance: DEXAMETHASONE SODIUM PHOSPHATE
     Dosage: 10 MILLIGRAM DAILY OVER 20 MINUTES FOR 1 DAY IN NS 50 ML
     Route: 042
     Dates: start: 20160909, end: 20160909
  11. DEXAMETHASONE SODIUM PHOSPHATE [Concomitant]
     Active Substance: DEXAMETHASONE SODIUM PHOSPHATE
     Dosage: 10 MILLIGRAM, SINGLE
     Route: 042
     Dates: start: 20170929, end: 20170929
  12. DEXAMETHASONE SODIUM PHOSPHATE [Concomitant]
     Active Substance: DEXAMETHASONE SODIUM PHOSPHATE
     Dosage: 10 MILLIGRAM, SINGLE
     Route: 042
     Dates: start: 20171006, end: 20171006
  13. DEXAMETHASONE SODIUM PHOSPHATE [Concomitant]
     Active Substance: DEXAMETHASONE SODIUM PHOSPHATE
     Dosage: 10 MILLIGRAM, SINGLE
     Route: 042
     Dates: start: 20180511, end: 20180511
  14. DEXAMETHASONE SODIUM PHOSPHATE [Concomitant]
     Active Substance: DEXAMETHASONE SODIUM PHOSPHATE
     Dosage: 10 MILLIGRAM, SINGLE
     Route: 042
     Dates: start: 20180518, end: 20180518
  15. DIPHENHYDRAMINE HYDROCHLORIDE [Interacting]
     Active Substance: DIPHENHYDRAMINE HYDROCHLORIDE
     Indication: Premedication
     Dosage: 25 MILLIGRAM DAILY OVER 1 MINUTE FOR 1 DAY
     Dates: start: 20160902, end: 20160902
  16. DIPHENHYDRAMINE HYDROCHLORIDE [Interacting]
     Active Substance: DIPHENHYDRAMINE HYDROCHLORIDE
     Dosage: 25 MILLIGRAM DAILY OVER 1 MINUTE FOR 1 DAY
     Dates: start: 20160909, end: 20160909
  17. DIPHENHYDRAMINE HYDROCHLORIDE [Interacting]
     Active Substance: DIPHENHYDRAMINE HYDROCHLORIDE
     Dosage: 25 MILLIGRAM, SINGLE
     Route: 042
     Dates: start: 20170929, end: 20170929
  18. DIPHENHYDRAMINE HYDROCHLORIDE [Interacting]
     Active Substance: DIPHENHYDRAMINE HYDROCHLORIDE
     Dosage: 25 MILLIGRAM, SINGLE
     Route: 042
     Dates: start: 20171006, end: 20171006
  19. DIPHENHYDRAMINE HYDROCHLORIDE [Interacting]
     Active Substance: DIPHENHYDRAMINE HYDROCHLORIDE
     Dosage: 25 MILLIGRAM, SINGLE
     Route: 042
     Dates: start: 20180511, end: 20180511
  20. DIPHENHYDRAMINE HYDROCHLORIDE [Interacting]
     Active Substance: DIPHENHYDRAMINE HYDROCHLORIDE
     Dosage: 25 MILLIGRAM, SINGLE
     Route: 042
     Dates: start: 20180518, end: 20180518
  21. PEPCID                             /00706001/ [Concomitant]
     Indication: Premedication
     Dosage: 20 MILLIGRAM DAILY OVER 20 MINUTES FOR 1 DAY IN NS 50 ML
     Route: 042
     Dates: start: 20160902, end: 20160902
  22. PEPCID                             /00706001/ [Concomitant]
     Dosage: 20 MILLIGRAM DAILY OVER 20 MINUTES FOR 1 DAY IN NS 50 ML
     Route: 042
     Dates: start: 20160909, end: 20160909
  23. PEPCID                             /00706001/ [Concomitant]
     Dosage: 20 MILLIGRAM, SINGLE
     Route: 042
     Dates: start: 20170929, end: 20170929
  24. PEPCID                             /00706001/ [Concomitant]
     Dosage: 20 MILLIGRAM, SINGLE
     Route: 042
     Dates: start: 20171006, end: 20171006
  25. PEPCID                             /00706001/ [Concomitant]
     Dosage: 20 MILLIGRAM, SINGLE
     Route: 042
     Dates: start: 20180511, end: 20180511
  26. PEPCID                             /00706001/ [Concomitant]
     Dosage: 20 MILLIGRAM, SINGLE
     Route: 042
     Dates: start: 20180518, end: 20180518
  27. HYDROCHLOROTHIAZIDE [Concomitant]
     Active Substance: HYDROCHLOROTHIAZIDE
     Indication: Hypertension
     Dosage: 25 MILLIGRAM, QD
     Route: 048
  28. SEASONIQUE [Concomitant]
     Active Substance: ETHINYL ESTRADIOL\LEVONORGESTREL
     Indication: Product used for unknown indication
     Dosage: 1 TABLET (0.15-0.03 + 0.01 MG) DAILY
     Route: 048

REACTIONS (16)
  - Pain [Not Recovered/Not Resolved]
  - Myalgia [Not Recovered/Not Resolved]
  - Muscle spasms [Not Recovered/Not Resolved]
  - Oedema peripheral [Recovered/Resolved]
  - Peripheral venous disease [Not Recovered/Not Resolved]
  - Condition aggravated [Not Recovered/Not Resolved]
  - Hypophosphataemia [Not Recovered/Not Resolved]
  - Tachycardia [Not Recovered/Not Resolved]
  - Dizziness [Not Recovered/Not Resolved]
  - Palpitations [Not Recovered/Not Resolved]
  - Chest pain [Recovered/Resolved]
  - Dyspnoea [Recovered/Resolved]
  - Anhedonia [Not Recovered/Not Resolved]
  - Emotional distress [Not Recovered/Not Resolved]
  - Anxiety [Not Recovered/Not Resolved]
  - Product quality issue [Not Recovered/Not Resolved]

NARRATIVE: CASE EVENT DATE: 20160101
